FAERS Safety Report 18144894 (Version 1)
Quarter: 2020Q3

REPORT INFORMATION
  Report Type: Spontaneous
  Country: DE (occurrence: DE)
  Receive Date: 20200813
  Receipt Date: 20200813
  Transmission Date: 20201103
  Serious: Yes (Other)
  Sender: FDA-Public Use
  Company Number: NVSC2020DE209277

PATIENT
  Age: 69 Year
  Sex: Female
  Weight: 70 kg

DRUGS (2)
  1. LETROZOLE. [Suspect]
     Active Substance: LETROZOLE
     Indication: BREAST CANCER
     Dosage: 25 MG, QD
     Route: 065
  2. LETROZOLE. [Suspect]
     Active Substance: LETROZOLE
     Indication: AROMATASE INHIBITION THERAPY
     Dosage: UNK
     Route: 048
     Dates: start: 20200624, end: 20200704

REACTIONS (8)
  - Muscle spasms [Not Recovered/Not Resolved]
  - Adverse reaction [Unknown]
  - Myosclerosis [Recovered/Resolved]
  - Musculoskeletal stiffness [Recovered/Resolved]
  - Muscle swelling [Recovered/Resolved]
  - Muscle spasms [Recovered/Resolved]
  - Induration [Recovered/Resolved]
  - Muscle twitching [Not Recovered/Not Resolved]

NARRATIVE: CASE EVENT DATE: 20200628
